FAERS Safety Report 23139162 (Version 1)
Quarter: 2023Q4

REPORT INFORMATION
  Report Type: Spontaneous
  Country: US (occurrence: None)
  Receive Date: 20231102
  Receipt Date: 20231102
  Transmission Date: 20240109
  Serious: Yes (Hospitalization)
  Sender: FDA-Public Use
  Company Number: None

PATIENT
  Age: 87 Year
  Sex: Female

DRUGS (1)
  1. GAMMAGARD LIQUID [Suspect]
     Active Substance: HUMAN IMMUNOGLOBULIN G
     Dosage: FREQUENCY : EVERY 12 HOURS;?
     Route: 042
     Dates: start: 202212

REACTIONS (2)
  - Cardiac disorder [None]
  - Therapy interrupted [None]

NARRATIVE: CASE EVENT DATE: 20231031
